FAERS Safety Report 7580707-8 (Version None)
Quarter: 2011Q2

REPORT INFORMATION
  Report Type: 
  Country: None (occurrence: None)
  Receive Date: 20110629
  Receipt Date: 20110628
  Transmission Date: 20111010
  Serious: Yes (Life-Threatening)
  Sender: FDA-Public Use
  Company Number: IT-ELI_LILLY_AND_COMPANY-IT201009000867

PATIENT
  Sex: Female
  Weight: 70 kg

DRUGS (11)
  1. ANTIHISTAMINES [Concomitant]
     Indication: PROPHYLAXIS
     Dates: start: 20100315, end: 20100706
  2. BISOPROLOL FUMARATE [Concomitant]
     Indication: HYPERTENSION
     Dates: end: 20100726
  3. CISPLATIN [Suspect]
     Indication: NON-SMALL CELL LUNG CANCER
     Dosage: 75 MG/M2, OTHER (DAY ONE EVERY 21 DAYS)
     Route: 042
     Dates: start: 20100315, end: 20100706
  4. DEXAMETHASONE [Concomitant]
     Indication: PROPHYLAXIS
     Dates: start: 20100315, end: 20100706
  5. FOLIC ACID [Concomitant]
     Indication: PROPHYLAXIS
     Dosage: UNK, UNKNOWN
     Dates: start: 20100304
  6. PEMETREXED [Suspect]
     Indication: NON-SMALL CELL LUNG CANCER
     Dosage: 500 MG/M2, OTHER (DAY I EVEY 21 DAYS)
     Route: 042
     Dates: start: 20100315, end: 20100706
  7. VITAMIN B-12 [Concomitant]
     Indication: PROPHYLAXIS
     Dates: start: 20100304, end: 20100706
  8. CO-EFFERALGAN [Concomitant]
     Indication: CANCER PAIN
     Dates: start: 20100304, end: 20100726
  9. CETUXIMAB [Suspect]
     Indication: NON-SMALL CELL LUNG CANCER
     Dosage: 400 MG/M2, OTHER (DAY 1 EVERY 21 DAYS)
     Route: 042
     Dates: start: 20100315
  10. CETUXIMAB [Suspect]
     Dosage: 250 MG/M2, WEEKLY (1/W)
     Route: 042
     Dates: end: 20100706
  11. LANSOPRAZOL [Concomitant]
     Indication: PROPHYLAXIS
     Dates: start: 20100304, end: 20100726

REACTIONS (1)
  - PANCYTOPENIA [None]
